FAERS Safety Report 7486602-7 (Version None)
Quarter: 2011Q2

REPORT INFORMATION
  Report Type: 
  Country: None (occurrence: None)
  Receive Date: 20110517
  Receipt Date: 20100927
  Transmission Date: 20111010
  Serious: No
  Sender: FDA-Public Use
  Company Number: US-NOVEN-ALL1-2010-05082

PATIENT
  Age: 7 Year
  Sex: Male
  Weight: 24.49 kg

DRUGS (3)
  1. DAYTRANA [Suspect]
     Dosage: UNK MG, (1 1/2 20MG PATCHES CUT)1X/DAY:QD
     Route: 062
     Dates: start: 20100925
  2. ZOLOFT [Concomitant]
  3. ZOLOFT [Concomitant]
     Dosage: 50 MG, 1X/DAY:QD
     Route: 048
     Dates: start: 20090101

REACTIONS (6)
  - MYDRIASIS [None]
  - DRUG PRESCRIBING ERROR [None]
  - IMPULSIVE BEHAVIOUR [None]
  - INCORRECT DRUG ADMINISTRATION DURATION [None]
  - PRODUCT ADHESION ISSUE [None]
  - WRONG TECHNIQUE IN DRUG USAGE PROCESS [None]
